FAERS Safety Report 21602969 (Version 1)
Quarter: 2022Q4

REPORT INFORMATION
  Report Type: Spontaneous
  Country: US (occurrence: None)
  Receive Date: 20221115
  Receipt Date: 20221115
  Transmission Date: 20230113
  Serious: No
  Sender: FDA-Public Use
  Company Number: None

PATIENT

DRUGS (5)
  1. CEFEPIME [Suspect]
     Active Substance: CEFEPIME HYDROCHLORIDE
     Dosage: OTHER STRENGTH : 1 GRAM PER VIAL;?
  2. AMPICILLIN [Suspect]
     Active Substance: AMPICILLIN
     Dosage: OTHER STRENGTH : 2 G PER VIAL;?
     Route: 042
  3. NAFCILLIN SODIUM [Suspect]
     Active Substance: NAFCILLIN SODIUM
     Dosage: OTHER STRENGTH : 2 GRAMS PER VIAL;?
  4. DEXTROSE\SODIUM CHLORIDE [Suspect]
     Active Substance: DEXTROSE\SODIUM CHLORIDE
     Route: 042
  5. SODIUM CHLORIDE [Suspect]
     Active Substance: SODIUM CHLORIDE
     Route: 042

REACTIONS (3)
  - Product packaging confusion [None]
  - Product label confusion [None]
  - Circumstance or information capable of leading to medication error [None]
